FAERS Safety Report 19495789 (Version 1)
Quarter: 2021Q3

REPORT INFORMATION
  Report Type: Spontaneous
  Country: US (occurrence: US)
  Receive Date: 20210701
  Receipt Date: 20210701
  Transmission Date: 20211014
  Serious: No
  Sender: FDA-Public Use
  Company Number: None

PATIENT
  Sex: Female

DRUGS (11)
  1. LETROZOLE 2.5 MG TAB [Concomitant]
  2. CAPECITABINE 500 MG TAB [Suspect]
     Active Substance: CAPECITABINE
     Indication: BREAST CANCER
     Route: 048
  3. CARVEDILOL 25 MG TAB [Concomitant]
  4. TUKYSA 50 MG TAB [Concomitant]
  5. AMLODIPINE/BENAZEPRIL 5?10 TAB [Concomitant]
  6. CLONIDINE 0.2 MG TAB [Concomitant]
  7. FUROSEMIDE 20 MG TAB [Concomitant]
  8. ASPIRIN 81 MG TAB [Concomitant]
  9. TUKYSA [Concomitant]
     Active Substance: TUCATINIB
  10. ATORVASTATIN 20 MG TAB [Concomitant]
  11. NAPROXEN 500 MG TAB [Concomitant]

REACTIONS (1)
  - Disease progression [None]
